FAERS Safety Report 4458042-6 (Version None)
Quarter: 2004Q3

REPORT INFORMATION
  Report Type: 
  Country: None (occurrence: None)
  Receive Date: 20040924
  Receipt Date: 20040913
  Transmission Date: 20050211
  Serious: Yes (Hospitalization)
  Sender: FDA-Public Use
  Company Number: BE-JNJFOC-20040808381

PATIENT
  Age: 3 Month
  Sex: Male

DRUGS (4)
  1. PROPULSID [Suspect]
     Route: 049
  2. ZANTAC [Concomitant]
     Route: 049
  3. GAVISCON [Concomitant]
     Route: 049
  4. GAVISCON [Concomitant]
     Route: 049

REACTIONS (7)
  - APNOEA [None]
  - BRADYPNOEA [None]
  - COUGH [None]
  - CYANOSIS [None]
  - ELECTROCARDIOGRAM ABNORMAL [None]
  - MALAISE [None]
  - RESPIRATORY DISORDER [None]
